FAERS Safety Report 18752632 (Version 1)
Quarter: 2021Q1

REPORT INFORMATION
  Report Type: Report from Study
  Country: GB (occurrence: GB)
  Receive Date: 20210118
  Receipt Date: 20210118
  Transmission Date: 20210419
  Serious: Yes (Hospitalization, Other)
  Sender: FDA-Public Use
  Company Number: GB-SAMSUNG BIOEPIS-SB-2020-30982

PATIENT
  Age: 64 Year
  Sex: Male

DRUGS (2)
  1. IMRALDI [Suspect]
     Active Substance: ADALIMUMAB
     Route: 058
  2. IMRALDI [Suspect]
     Active Substance: ADALIMUMAB
     Indication: COLITIS ULCERATIVE
     Route: 058
     Dates: start: 20200716

REACTIONS (13)
  - Malaise [Unknown]
  - Food intolerance [Unknown]
  - Lower respiratory tract infection [Unknown]
  - Terminal insomnia [Unknown]
  - Therapeutic product effect incomplete [Unknown]
  - Hiccups [Unknown]
  - Dehydration [Unknown]
  - Colitis ulcerative [Unknown]
  - Dyspnoea [Unknown]
  - Pneumonia [Unknown]
  - Pulmonary oedema [Unknown]
  - Anxiety [Unknown]
  - Headache [Unknown]

NARRATIVE: CASE EVENT DATE: 202012
